FAERS Safety Report 5712537-3 (Version None)
Quarter: 2008Q2

REPORT INFORMATION
  Report Type: 
  Country: None (occurrence: None)
  Receive Date: 20080418
  Receipt Date: 20080409
  Transmission Date: 20081010
  Serious: Yes (Other)
  Sender: FDA-Public Use
  Company Number: CHPA2008US06341

PATIENT
  Age: 42 Year
  Sex: Female
  Weight: 95.7 kg

DRUGS (1)
  1. EXCEDRIN (MIGRAINE) [Suspect]
     Indication: HEADACHE
     Dosage: ORAL; 2 DF, BID, ORAL
     Route: 048
     Dates: start: 20080409, end: 20080409

REACTIONS (3)
  - CONVULSION [None]
  - NAUSEA [None]
  - TREMOR [None]
